FAERS Safety Report 11242829 (Version 1)
Quarter: 2015Q3

REPORT INFORMATION
  Report Type: Spontaneous
  Country: FR (occurrence: FR)
  Receive Date: 20150707
  Receipt Date: 20150707
  Transmission Date: 20151125
  Serious: Yes (Other)
  Sender: FDA-Public Use
  Company Number: FR-GLAXOSMITHKLINE-FR2015GSK096710

PATIENT
  Age: 42 Year
  Sex: Male

DRUGS (11)
  1. NOROXINE [Concomitant]
     Active Substance: NORFLOXACIN
     Dosage: 400 MG, 1D
     Route: 048
     Dates: end: 20141204
  2. SMECTA [Concomitant]
     Active Substance: MONTMORILLONITE
     Dosage: 6 G, 1D
     Route: 048
     Dates: start: 20141111, end: 20141116
  3. XATRAL [Concomitant]
     Active Substance: ALFUZOSIN
     Dosage: 10 MG, 1D
     Route: 048
     Dates: start: 20141110, end: 20141123
  4. DIFFU K [Concomitant]
     Active Substance: POTASSIUM CHLORIDE
     Dosage: UNK
     Route: 048
     Dates: start: 20141115, end: 20141118
  5. KAYEXALATE [Concomitant]
     Active Substance: SODIUM POLYSTYRENE SULFONATE
     Dosage: UNK
     Route: 048
     Dates: start: 20141111, end: 20141111
  6. RANIPLEX [Suspect]
     Active Substance: RANITIDINE HYDROCHLORIDE
     Indication: GASTROOESOPHAGEAL REFLUX DISEASE
     Dosage: 300 MG, QD
     Route: 048
     Dates: start: 20141111, end: 20141204
  7. LASILIX [Concomitant]
     Active Substance: FUROSEMIDE
     Dosage: 125 MG, 1D
     Route: 048
  8. ALDACTONE [Concomitant]
     Active Substance: SPIRONOLACTONE
     Dosage: 50 MG, 1D
     Route: 048
  9. DUPHALAC [Concomitant]
     Active Substance: LACTULOSE
     Dosage: 2 DF, BID
     Route: 048
     Dates: start: 20141110
  10. ALBUMINE [Concomitant]
     Dosage: 20 G, 1D
     Route: 042
     Dates: start: 20141110, end: 20141113
  11. ROCEPHINE [Concomitant]
     Active Substance: CEFTRIAXONE SODIUM
     Dosage: 1 G, 1D
     Route: 042
     Dates: start: 20141109, end: 20141115

REACTIONS (1)
  - Mania [Not Recovered/Not Resolved]

NARRATIVE: CASE EVENT DATE: 20141115
